FAERS Safety Report 25889763 (Version 1)
Quarter: 2025Q4

REPORT INFORMATION
  Report Type: Spontaneous
  Country: RU (occurrence: RU)
  Receive Date: 20251007
  Receipt Date: 20251007
  Transmission Date: 20260118
  Serious: Yes (Other)
  Sender: ROCHE
  Company Number: RU-ROCHE-10000401357

PATIENT
  Age: 61 Year
  Sex: Female

DRUGS (1)
  1. OBINUTUZUMAB [Suspect]
     Active Substance: OBINUTUZUMAB
     Indication: Follicular lymphoma
     Route: 065

REACTIONS (5)
  - Myelosuppression [Unknown]
  - Blood immunoglobulin G decreased [Unknown]
  - Bronchitis [Unknown]
  - Pneumonia [Unknown]
  - Leukopenia [Unknown]
